FAERS Safety Report 18054179 (Version 1)
Quarter: 2020Q3

REPORT INFORMATION
  Report Type: Spontaneous
  Country: US (occurrence: US)
  Receive Date: 20200722
  Receipt Date: 20200722
  Transmission Date: 20201103
  Serious: Yes (Death)
  Sender: FDA-Public Use
  Company Number: None

PATIENT
  Age: 68 Year
  Sex: Female
  Weight: 139.3 kg

DRUGS (10)
  1. DEXAMETHASONE. [Concomitant]
     Active Substance: DEXAMETHASONE
     Dates: start: 20200710, end: 20200721
  2. PROPOFOL. [Concomitant]
     Active Substance: PROPOFOL
     Dates: start: 20200720, end: 20200721
  3. FENTANYL. [Concomitant]
     Active Substance: FENTANYL
     Dates: start: 20200721, end: 20200721
  4. MULTIVITAMIN [Concomitant]
     Active Substance: VITAMINS
     Dates: start: 20200711, end: 20200720
  5. ERGOCALCIFEROL. [Concomitant]
     Active Substance: ERGOCALCIFEROL
     Dates: start: 20200711, end: 20200720
  6. VERSED [Concomitant]
     Active Substance: MIDAZOLAM HYDROCHLORIDE
     Dates: start: 20200721, end: 20200721
  7. REMDESIVIR. [Suspect]
     Active Substance: REMDESIVIR
     Indication: ACUTE RESPIRATORY FAILURE
     Route: 042
  8. ZYVOX [Concomitant]
     Active Substance: LINEZOLID
     Dates: start: 20200721, end: 20200721
  9. ZOSYN [Concomitant]
     Active Substance: PIPERACILLIN SODIUM\TAZOBACTAM SODIUM
     Dates: start: 20200720, end: 20200721
  10. ZINC SULFATE. [Concomitant]
     Active Substance: ZINC SULFATE
     Dates: start: 20200711, end: 20200720

REACTIONS (5)
  - Alanine aminotransferase increased [None]
  - Blood creatinine increased [None]
  - Hypotension [None]
  - Aspartate aminotransferase increased [None]
  - Cardio-respiratory arrest [None]

NARRATIVE: CASE EVENT DATE: 20200721
